FAERS Safety Report 5798466-8 (Version None)
Quarter: 2008Q3

REPORT INFORMATION
  Report Type: 
  Country: None (occurrence: None)
  Receive Date: 20080702
  Receipt Date: 20080623
  Transmission Date: 20090109
  Serious: Yes (Hospitalization, Other)
  Sender: FDA-Public Use
  Company Number: PHHY2008BR12114

PATIENT
  Sex: Female
  Weight: 25 kg

DRUGS (3)
  1. CATAFLAM [Suspect]
     Indication: UPPER RESPIRATORY TRACT INFLAMMATION
     Dosage: 25 DROPS EVERY 8 HOURS
  2. CATAFLAM [Suspect]
     Dosage: 25 DROPS EVERY 8 HOURS
     Dates: start: 20080621, end: 20080623
  3. DIPYRONE [Concomitant]
     Indication: PYREXIA
     Dosage: 7 ML
     Route: 048
     Dates: start: 20080621, end: 20080623

REACTIONS (10)
  - ABDOMINAL PAIN UPPER [None]
  - ERYTHEMA [None]
  - GASTRIC DISORDER [None]
  - PRURITUS [None]
  - PYREXIA [None]
  - RASH PAPULAR [None]
  - REACTION TO DRUG EXCIPIENTS [None]
  - RHINORRHOEA [None]
  - SINUSITIS [None]
  - VOMITING [None]
